FAERS Safety Report 5345043-9 (Version None)
Quarter: 2007Q2

REPORT INFORMATION
  Report Type: 
  Country: None (occurrence: None)
  Receive Date: 20070425
  Receipt Date: 20060323
  Transmission Date: 20071010
  Serious: Yes (Other)
  Sender: FDA-Public Use
  Company Number: WAES 0603USA03938

PATIENT
  Age: 6 Year
  Sex: Male

DRUGS (1)
  1. SINGULAIR [Suspect]
     Dosage: PO
     Route: 048

REACTIONS (1)
  - CONVULSION [None]
